FAERS Safety Report 6093482-3 (Version None)
Quarter: 2009Q1

REPORT INFORMATION
  Report Type: 
  Country: None (occurrence: None)
  Receive Date: 20090226
  Receipt Date: 20090219
  Transmission Date: 20090719
  Serious: Yes (Other)
  Sender: FDA-Public Use
  Company Number: US-AMGEN-US322519

PATIENT
  Sex: Male
  Weight: 79.9 kg

DRUGS (1)
  1. NPLATE [Suspect]
     Indication: IDIOPATHIC THROMBOCYTOPENIC PURPURA
     Route: 058
     Dates: start: 20081204

REACTIONS (4)
  - ACNE [None]
  - PLATELET COUNT DECREASED [None]
  - RASH [None]
  - SKIN INFECTION [None]
